FAERS Safety Report 17132606 (Version 2)
Quarter: 2019Q4

REPORT INFORMATION
  Report Type: Spontaneous
  Country: CN (occurrence: CN)
  Receive Date: 20191210
  Receipt Date: 20191219
  Transmission Date: 20200122
  Serious: Yes (Disabling, Other)
  Sender: FDA-Public Use
  Company Number: CN-SA-2019SA334531

PATIENT
  Age: 48 Year
  Sex: Female

DRUGS (9)
  1. CISPLATIN. [Suspect]
     Active Substance: CISPLATIN
     Dosage: 75 MG/M2;  USED ON FIRST AND SECOND DAY (1ST CYCLE)
     Dates: start: 20171130, end: 20171201
  2. FLUOROURACIL. [Suspect]
     Active Substance: FLUOROURACIL
     Dosage: 500 MG/M2, USED FROM FIRST DAY TO FIFTH DAY
     Dates: start: 20171229, end: 20180102
  3. DOCETAXEL. [Suspect]
     Active Substance: DOCETAXEL
     Indication: KERATINISING SQUAMOUS CELL CARCINOMA OF NASOPHARYNX
     Dosage: 75 MG/M2, USED ON THE FIRST DAY
     Dates: start: 20171031, end: 20171031
  4. CISPLATIN. [Suspect]
     Active Substance: CISPLATIN
     Indication: KERATINISING SQUAMOUS CELL CARCINOMA OF NASOPHARYNX
     Dosage: 75 MG/M2;  USED ON FIRST AND SECOND DAY (1ST CYCLE)
     Dates: start: 20171031, end: 20171101
  5. CISPLATIN. [Suspect]
     Active Substance: CISPLATIN
     Dosage: 75 MG/M2;  USED ON FIRST AND SECOND DAY (1ST CYCLE)
     Dates: start: 20171229, end: 20171230
  6. DOCETAXEL. [Suspect]
     Active Substance: DOCETAXEL
     Dosage: 75 MG/M2, USED ON THE FIRST DAY
     Dates: start: 20171130, end: 20171130
  7. DOCETAXEL. [Suspect]
     Active Substance: DOCETAXEL
     Dosage: 75 MG/M2, USED ON THE FIRST DAY
     Dates: start: 20171229, end: 20171229
  8. FLUOROURACIL. [Suspect]
     Active Substance: FLUOROURACIL
     Indication: KERATINISING SQUAMOUS CELL CARCINOMA OF NASOPHARYNX
     Dosage: 500 MG/M2, USED FROM FIRST DAY TO FIFTH DAY
     Dates: start: 20171031, end: 20171104
  9. FLUOROURACIL. [Suspect]
     Active Substance: FLUOROURACIL
     Dosage: 500 MG/M2, USED FROM FIRST DAY TO FIFTH DAY
     Dates: start: 20171130, end: 20171204

REACTIONS (11)
  - Retinal exudates [Recovered/Resolved]
  - Visual field defect [Recovered/Resolved]
  - Visual impairment [Recovered/Resolved]
  - Retinal haemorrhage [Recovered/Resolved]
  - Loss of personal independence in daily activities [Recovered/Resolved]
  - Optic ischaemic neuropathy [Recovered/Resolved]
  - Ocular toxicity [Recovered/Resolved]
  - Visual acuity reduced [Recovered/Resolved]
  - Papilloedema [Recovered/Resolved]
  - Macular fibrosis [Recovered/Resolved]
  - Blindness [Recovered/Resolved]

NARRATIVE: CASE EVENT DATE: 2017
